FAERS Safety Report 7905268-2 (Version None)
Quarter: 2011Q4

REPORT INFORMATION
  Report Type: 
  Country: None (occurrence: None)
  Receive Date: 20111109
  Receipt Date: 20111107
  Transmission Date: 20120403
  Serious: Yes (Hospitalization, Other)
  Sender: FDA-Public Use
  Company Number: JP-PFIZER INC-2011136417

PATIENT
  Age: 69 Year
  Sex: Male
  Weight: 42 kg

DRUGS (11)
  1. CELECOXIB [Concomitant]
     Indication: PAIN
     Dosage: 200 MG, 2X/DAY
  2. FOLIC ACID [Concomitant]
     Indication: PROPHYLAXIS
     Dosage: 6 MG, WEEKLY
     Route: 048
  3. FERRUM ORAL ^LEK^ [Concomitant]
  4. CINAL [Concomitant]
  5. POSTERISAN FORTE [Concomitant]
  6. RABEPRAZOLE SODIUM [Concomitant]
     Indication: GASTROOESOPHAGEAL REFLUX DISEASE
     Dosage: 10 MG, 1X/DAY
     Route: 048
  7. RHEUMATREX [Suspect]
     Indication: RHEUMATOID ARTHRITIS
     Dosage: 8 MG, WEEKLY
     Route: 048
     Dates: start: 20101111, end: 20110520
  8. REMICADE [Suspect]
     Indication: RHEUMATOID ARTHRITIS
     Dosage: 160 MG PER SHOT
     Route: 042
     Dates: start: 20110615, end: 20110615
  9. RHEUMATREX [Suspect]
     Dosage: 12 MG, WEEKLY
     Route: 048
     Dates: start: 20110521, end: 20110625
  10. PREDNISOLONE [Concomitant]
     Indication: RHEUMATOID ARTHRITIS
     Dosage: 10 MG, 1X/DAY
     Route: 048
  11. MUCOSTA [Concomitant]
     Indication: GASTRIC MUCOSAL LESION
     Dosage: 100 MG, 2X/DAY
     Route: 048

REACTIONS (2)
  - THROMBOCYTOPENIA [None]
  - PNEUMONIA [None]
